FAERS Safety Report 18307664 (Version 1)
Quarter: 2020Q3

REPORT INFORMATION
  Report Type: Spontaneous
  Country: DE (occurrence: DE)
  Receive Date: 20200924
  Receipt Date: 20200924
  Transmission Date: 20201103
  Serious: Yes (Hospitalization)
  Sender: FDA-Public Use
  Company Number: DE-009507513-2009DEU005330

PATIENT
  Age: 83 Year
  Sex: Male
  Weight: 80 kg

DRUGS (8)
  1. CARBIDOPA (+) LEVODOPA [Suspect]
     Active Substance: CARBIDOPA\LEVODOPA
     Dosage: 25|100 MG, 1?2?1?0, PROLONGED?RELEASE TABLET
     Route: 048
  2. CARBIDOPA (+) LEVODOPA [Suspect]
     Active Substance: CARBIDOPA\LEVODOPA
     Dosage: 25|100 MG, 0?0?1?0, TABLETS
     Route: 048
  3. BENAZEPRIL HYDROCHLORIDE (+) HYDROCHLOROTHIAZIDE [Suspect]
     Active Substance: BENAZEPRIL HYDROCHLORIDE\HYDROCHLOROTHIAZIDE
     Dosage: 10|12.5 MG, 1?0?0?0, TABLETS
     Route: 048
  4. SITAGLIPTIN PHOSPHATE [Concomitant]
     Active Substance: SITAGLIPTIN PHOSPHATE
     Dosage: 100 MG, 1?0?0?0, TABLETS
     Route: 048
  5. APIXABAN [Concomitant]
     Active Substance: APIXABAN
     Dosage: 2.5 MG, 1?0?1?0, TABLETS
     Route: 048
  6. MIRTAZAPINE. [Concomitant]
     Active Substance: MIRTAZAPINE
     Dosage: 15 MG, 0?0?1.5?0, TABLETS
     Route: 048
  7. TORSEMIDE. [Suspect]
     Active Substance: TORSEMIDE
     Dosage: 10 MG, 1?1?0?0, TABLETS
     Route: 048
  8. QUETIAPINE FUMARATE. [Concomitant]
     Active Substance: QUETIAPINE FUMARATE
     Dosage: 50 MG, 0?0?2?0, TABLETS
     Route: 048

REACTIONS (5)
  - Thirst [Unknown]
  - Electrolyte imbalance [Unknown]
  - Constipation [Unknown]
  - Weight increased [Unknown]
  - General physical health deterioration [Unknown]
